APPROVED DRUG PRODUCT: HALOPERIDOL
Active Ingredient: HALOPERIDOL
Strength: 20MG
Dosage Form/Route: TABLET;ORAL
Application: A071328 | Product #001
Applicant: PAR PHARMACEUTICAL INC
Approved: Jul 20, 1987 | RLD: No | RS: No | Type: DISCN